FAERS Safety Report 17407434 (Version 3)
Quarter: 2020Q2

REPORT INFORMATION
  Report Type: Spontaneous
  Country: US (occurrence: US)
  Receive Date: 20200212
  Receipt Date: 20200528
  Transmission Date: 20200713
  Serious: Yes (Hospitalization, Other)
  Sender: FDA-Public Use
  Company Number: US-GILEAD-2020-0450622

PATIENT
  Age: 50 Year
  Sex: Male

DRUGS (54)
  1. CARISOPRODOL. [Concomitant]
     Active Substance: CARISOPRODOL
  2. TERBINAFINE. [Concomitant]
     Active Substance: TERBINAFINE
  3. ESOMEPRAZOLE MAGNESIUM. [Concomitant]
     Active Substance: ESOMEPRAZOLE MAGNESIUM
  4. DILAUDID [Concomitant]
     Active Substance: HYDROMORPHONE HYDROCHLORIDE
  5. MIDAZOLAM. [Concomitant]
     Active Substance: MIDAZOLAM
  6. ATRIPLA [Suspect]
     Active Substance: EFAVIRENZ\EMTRICITABINE\TENOFOVIR DISOPROXIL FUMARATE
     Indication: HIV INFECTION
     Dosage: 1 DOSAGE FORM, QD
     Route: 048
     Dates: start: 20110406, end: 20190212
  7. GENVOYA [Concomitant]
     Active Substance: COBICISTAT\ELVITEGRAVIR\EMTRICITABINE\TENOFOVIR ALAFENAMIDE FUMARATE
  8. PROAIR HFA [Concomitant]
     Active Substance: ALBUTEROL SULFATE
  9. PHENAZOPYRIDINE. [Concomitant]
     Active Substance: PHENAZOPYRIDINE
  10. ATRIPLA [Suspect]
     Active Substance: EFAVIRENZ\EMTRICITABINE\TENOFOVIR DISOPROXIL FUMARATE
     Dosage: 1 DOSAGE FORM, QD
     Route: 048
     Dates: start: 201610, end: 20190212
  11. SUMATRIPTAN SUCCINATE. [Concomitant]
     Active Substance: SUMATRIPTAN SUCCINATE
  12. IBUPROFEN. [Concomitant]
     Active Substance: IBUPROFEN
  13. CIPROFLOXACIN. [Concomitant]
     Active Substance: CIPROFLOXACIN
  14. TRAMADOL HCL [Concomitant]
     Active Substance: TRAMADOL HYDROCHLORIDE
  15. NALOXONE [Concomitant]
     Active Substance: NALOXONE
  16. PLASMA-LYTE A [Concomitant]
     Active Substance: MAGNESIUM CHLORIDE\POTASSIUM CHLORIDE\SODIUM ACETATE\SODIUM CHLORIDE\SODIUM GLUCONATE
  17. MAGNESIUM SULFATE. [Concomitant]
     Active Substance: MAGNESIUM SULFATE
  18. DESCOVY [Concomitant]
     Active Substance: EMTRICITABINE\TENOFOVIR ALAFENAMIDE FUMARATE
  19. OXYCODONE/APAP [OXYCODONE;PARACETAMOL] [Concomitant]
  20. KADIAN [Concomitant]
     Active Substance: MORPHINE SULFATE
  21. HYDROCHLOROTHIAZIDE. [Concomitant]
     Active Substance: HYDROCHLOROTHIAZIDE
  22. FLUCONAZOLE. [Concomitant]
     Active Substance: FLUCONAZOLE
  23. NYSTATIN. [Concomitant]
     Active Substance: NYSTATIN
  24. CHANTIX [Concomitant]
     Active Substance: VARENICLINE TARTRATE
  25. GENTAMICIN. [Concomitant]
     Active Substance: GENTAMICIN
  26. KETAMINE [Concomitant]
     Active Substance: KETAMINE
  27. DEXTROSE;SODIUM CHLORIDE [Concomitant]
  28. NICOTINE. [Concomitant]
     Active Substance: NICOTINE
  29. SODIUM CHLORIDE 0.9% [Concomitant]
     Active Substance: SODIUM CHLORIDE
  30. TIVICAY [Concomitant]
     Active Substance: DOLUTEGRAVIR SODIUM
  31. ONDANSETRON [Concomitant]
     Active Substance: ONDANSETRON
  32. NYSTOP [Concomitant]
     Active Substance: NYSTATIN
  33. DIAZEPAM. [Concomitant]
     Active Substance: DIAZEPAM
  34. LISINOPRIL. [Concomitant]
     Active Substance: LISINOPRIL
  35. CHERATUSSIN AC [Concomitant]
     Active Substance: CODEINE PHOSPHATE\GUAIFENESIN
  36. BENZONATATE. [Concomitant]
     Active Substance: BENZONATATE
  37. SODIUM CHLORIDE. [Concomitant]
     Active Substance: SODIUM CHLORIDE
  38. FLUMAZENIL. [Concomitant]
     Active Substance: FLUMAZENIL
  39. TRIAMCINOLONE [Concomitant]
     Active Substance: TRIAMCINOLONE
  40. HYDROXYZINE HCL [Concomitant]
     Active Substance: HYDROXYZINE HYDROCHLORIDE
  41. BUPROPION. [Concomitant]
     Active Substance: BUPROPION
  42. KLOR-CON [Concomitant]
     Active Substance: POTASSIUM CHLORIDE
  43. FENTANYL. [Concomitant]
     Active Substance: FENTANYL
  44. HEPARIN [Concomitant]
     Active Substance: HEPARIN SODIUM
  45. CYCLOBENZAPRINE. [Concomitant]
     Active Substance: CYCLOBENZAPRINE
  46. SODIUM GLYCEROPHOSPHATE [Concomitant]
     Active Substance: SODIUM GLYCEROPHOSPHATE
  47. AMBIEN [Concomitant]
     Active Substance: ZOLPIDEM TARTRATE
  48. TIZANIDINE HCL [Concomitant]
     Active Substance: TIZANIDINE HYDROCHLORIDE
  49. LOSARTAN POTASSIUM. [Concomitant]
     Active Substance: LOSARTAN POTASSIUM
  50. CEPHALEXIN [CEFALEXIN] [Concomitant]
     Active Substance: CEPHALEXIN
  51. MUPIROCIN. [Concomitant]
     Active Substance: MUPIROCIN
  52. FLUTICASONE PROPIONATE. [Concomitant]
     Active Substance: FLUTICASONE PROPIONATE
  53. HYDROCODONE/ACETAMINOPHEN [Concomitant]
     Active Substance: ACETAMINOPHEN\HYDROCODONE
  54. COLACE [Concomitant]
     Active Substance: DOCUSATE SODIUM

REACTIONS (12)
  - Anhedonia [Unknown]
  - Fanconi syndrome acquired [Recovered/Resolved]
  - Chronic kidney disease [Not Recovered/Not Resolved]
  - Economic problem [Unknown]
  - Bone density decreased [Unknown]
  - Anxiety [Unknown]
  - Renal failure [Unknown]
  - Acute kidney injury [Recovered/Resolved]
  - Tooth loss [Not Recovered/Not Resolved]
  - Dental caries [Not Recovered/Not Resolved]
  - Pain [Unknown]
  - Emotional distress [Unknown]

NARRATIVE: CASE EVENT DATE: 201812
